FAERS Safety Report 5043072-6 (Version None)
Quarter: 2006Q2

REPORT INFORMATION
  Report Type: 
  Country: None (occurrence: None)
  Receive Date: 20060628
  Receipt Date: 20060616
  Transmission Date: 20061013
  Serious: Yes (Hospitalization)
  Sender: FDA-Public Use
  Company Number: FRWYE480017MAR06

PATIENT
  Age: 70 Year
  Sex: Male

DRUGS (6)
  1. EFFEXOR XR [Suspect]
     Indication: DEPRESSION
     Dosage: 112.5 MG TOTAL DAILY ORAL
     Route: 048
     Dates: start: 20050606
  2. DAFLON (DIOSMIN) [Concomitant]
  3. ESBERIVEN (MELILOT/RUTOSIDE) [Concomitant]
  4. PREVISCAN (FLUINDIONE) [Concomitant]
  5. LASIX [Concomitant]
  6. ATARAX [Concomitant]

REACTIONS (3)
  - ANAEMIA [None]
  - GASTRODUODENAL ULCER [None]
  - HAEMATEMESIS [None]
